FAERS Safety Report 20215541 (Version 1)
Quarter: 2021Q4

REPORT INFORMATION
  Report Type: Spontaneous
  Country: US (occurrence: US)
  Receive Date: 20211222
  Receipt Date: 20211222
  Transmission Date: 20220303
  Serious: No
  Sender: FDA-Public Use
  Company Number: US-AMGEN-USASP2021203153

PATIENT
  Age: 72 Year
  Sex: Male

DRUGS (2)
  1. NEUPOGEN [Suspect]
     Active Substance: FILGRASTIM
     Indication: White blood cell count decreased
     Dosage: 300 MICROGRAM (TUESDAYS AND FRIDAYS)
     Route: 065
     Dates: start: 202112
  2. NEUPOGEN [Suspect]
     Active Substance: FILGRASTIM
     Indication: Off label use

REACTIONS (1)
  - Off label use [Unknown]

NARRATIVE: CASE EVENT DATE: 20211201
